FAERS Safety Report 10149632 (Version 1)
Quarter: 2014Q2

REPORT INFORMATION
  Report Type: Spontaneous
  Country: US (occurrence: US)
  Receive Date: 20140502
  Receipt Date: 20140502
  Transmission Date: 20141212
  Serious: No
  Sender: FDA-Public Use
  Company Number: US-PFIZER INC-2014120646

PATIENT
  Age: 49 Year
  Sex: Female
  Weight: 81.6 kg

DRUGS (5)
  1. LYRICA [Suspect]
     Indication: FIBROMYALGIA
     Dosage: 50 MG, 3X/DAY
     Route: 048
     Dates: end: 20140428
  2. ADVIL [Concomitant]
     Indication: ARTHRITIS
     Dosage: 200 MG, AS NEEDED
  3. ADVIL [Concomitant]
     Indication: TEMPOROMANDIBULAR JOINT SYNDROME
  4. CYMBALTA [Concomitant]
     Indication: DEPRESSION
     Dosage: 60 MG, DAILY
  5. CYMBALTA [Concomitant]
     Indication: FIBROMYALGIA

REACTIONS (1)
  - Pain [Not Recovered/Not Resolved]
